FAERS Safety Report 18613293 (Version 2)
Quarter: 2025Q4

REPORT INFORMATION
  Report Type: Spontaneous
  Country: US (occurrence: US)
  Receive Date: 20201214
  Receipt Date: 20251204
  Transmission Date: 20260117
  Serious: Yes (Other)
  Sender: NOVO NORDISK
  Company Number: US-NOVOPROD-700850

PATIENT
  Sex: Male

DRUGS (1)
  1. LEVEMIR [Suspect]
     Active Substance: INSULIN DETEMIR
     Indication: Diabetes mellitus
     Dosage: 20 IU, BID
     Route: 058

REACTIONS (5)
  - Diabetic neuropathy [Unknown]
  - Condition aggravated [Unknown]
  - Blood glucose increased [Recovering/Resolving]
  - Product dose omission issue [Recovered/Resolved]
  - Device failure [Unknown]
